FAERS Safety Report 6484529-0 (Version None)
Quarter: 2009Q4

REPORT INFORMATION
  Report Type: 
  Country: None (occurrence: None)
  Receive Date: 20091209
  Receipt Date: 20091203
  Transmission Date: 20100525
  Serious: Yes (Other)
  Sender: FDA-Public Use
  Company Number: PHBS2007BR09493

PATIENT
  Sex: Female
  Weight: 61 kg

DRUGS (6)
  1. FEMARA [Suspect]
     Indication: BREAST CANCER
     Dosage: 2.5 MG/D
     Route: 048
     Dates: start: 20040101
  2. MAREVAN [Concomitant]
     Indication: ANTICOAGULANT THERAPY
     Dosage: 0.5 TABLET/D
     Route: 048
  3. CRESTOR [Concomitant]
     Indication: BLOOD CHOLESTEROL
     Dosage: 10 MG/D
     Route: 048
  4. ESPIRONOLACTONA [Concomitant]
     Indication: POLYURIA
     Dosage: 1 TABLET/D
     Route: 048
  5. TRIPTANOL [Concomitant]
     Indication: BONE PAIN
     Dosage: 3 TABLETS/DAILY
     Route: 048
  6. TRIPTANOL [Concomitant]
     Indication: FIBROMYALGIA

REACTIONS (11)
  - ABDOMINAL PAIN [None]
  - ARTHRALGIA [None]
  - BONE DENSITY DECREASED [None]
  - BONE PAIN [None]
  - DIZZINESS [None]
  - FIBROMYALGIA [None]
  - HEADACHE [None]
  - INFLAMMATION [None]
  - LABYRINTHITIS [None]
  - OSTEOPOROSIS [None]
  - PAIN IN EXTREMITY [None]
